FAERS Safety Report 13401241 (Version 1)
Quarter: 2017Q2

REPORT INFORMATION
  Report Type: Spontaneous
  Country: US (occurrence: US)
  Receive Date: 20170404
  Receipt Date: 20170404
  Transmission Date: 20170830
  Serious: No
  Sender: FDA-Public Use
  Company Number: US-ELI_LILLY_AND_COMPANY-US201607008637

PATIENT
  Sex: Female
  Weight: 84 kg

DRUGS (1)
  1. CYMBALTA [Suspect]
     Active Substance: DULOXETINE HYDROCHLORIDE
     Indication: RADICULAR PAIN
     Dosage: 60 MG, QD
     Route: 048
     Dates: start: 20140715

REACTIONS (12)
  - Affect lability [Unknown]
  - Paraesthesia [Unknown]
  - Diarrhoea [Unknown]
  - Fatigue [Unknown]
  - Anxiety [Unknown]
  - Dysphoria [Unknown]
  - Confusional state [Unknown]
  - Nausea [Unknown]
  - Intentional product misuse [Unknown]
  - Headache [Unknown]
  - Irritability [Unknown]
  - Drug withdrawal syndrome [Unknown]
